FAERS Safety Report 22038931 (Version 1)
Quarter: 2023Q1

REPORT INFORMATION
  Report Type: Spontaneous
  Country: US (occurrence: US)
  Receive Date: 20230227
  Receipt Date: 20230227
  Transmission Date: 20230417
  Serious: No
  Sender: FDA-Public Use
  Company Number: US-IGSA-BIG0021408

PATIENT
  Sex: Male
  Weight: 73 kg

DRUGS (1)
  1. PROLASTIN-C LIQUID [Suspect]
     Active Substance: .ALPHA.1-PROTEINASE INHIBITOR HUMAN
     Indication: Alpha-1 antitrypsin deficiency
     Dosage: UNK UNK, Q.WK.
     Route: 042
     Dates: start: 2022

REACTIONS (3)
  - Incorrect product administration duration [Unknown]
  - Chills [Recovered/Resolved]
  - Feeling cold [Recovered/Resolved]
